FAERS Safety Report 7201990-4 (Version None)
Quarter: 2010Q4

REPORT INFORMATION
  Report Type: 
  Country: None (occurrence: None)
  Receive Date: 20101229
  Receipt Date: 20101220
  Transmission Date: 20110411
  Serious: Yes (Other)
  Sender: FDA-Public Use
  Company Number: JP-JNJFOC-20101208004

PATIENT
  Sex: Female
  Weight: 63 kg

DRUGS (18)
  1. DOXORUBICIN HCL [Suspect]
     Indication: OVARIAN CANCER RECURRENT
     Dosage: CYCLE 3
     Route: 042
  2. DOXORUBICIN HCL [Suspect]
     Dosage: CYCLE 2
     Route: 042
  3. DOXORUBICIN HCL [Suspect]
     Dosage: CYCLE 1
     Route: 042
  4. DOXORUBICIN HCL [Suspect]
     Dosage: CYCLE 4
     Route: 042
  5. DOXORUBICIN HCL [Suspect]
     Dosage: CYCLE 5
     Route: 042
  6. DOXORUBICIN HCL [Suspect]
     Dosage: CYCLE 6
     Route: 042
  7. OXYCONTIN [Concomitant]
     Indication: PRODUCT USED FOR UNKNOWN INDICATION
     Route: 048
  8. VOLTAREN [Concomitant]
     Indication: PRODUCT USED FOR UNKNOWN INDICATION
     Route: 048
  9. MUCOSTA [Concomitant]
     Indication: PROPHYLAXIS
     Route: 048
  10. LAXOBERON [Concomitant]
     Indication: PRODUCT USED FOR UNKNOWN INDICATION
     Route: 048
  11. ADJUST-A [Concomitant]
     Indication: PRODUCT USED FOR UNKNOWN INDICATION
     Route: 048
  12. HALCION [Concomitant]
     Indication: PRODUCT USED FOR UNKNOWN INDICATION
     Route: 048
  13. GENTACIN [Concomitant]
     Indication: PRODUCT USED FOR UNKNOWN INDICATION
     Route: 061
  14. BIODIASTASE-NATURAL AGENTS COMBINED DRUG [Concomitant]
     Indication: PRODUCT USED FOR UNKNOWN INDICATION
     Route: 048
  15. ISODINE GARGLE [Concomitant]
     Indication: PRODUCT USED FOR UNKNOWN INDICATION
     Route: 002
  16. FULMETA [Concomitant]
     Indication: PRODUCT USED FOR UNKNOWN INDICATION
     Route: 061
  17. KYTRIL [Concomitant]
     Indication: PROPHYLAXIS
     Route: 042
  18. DECADRON [Concomitant]
     Indication: PROPHYLAXIS
     Route: 042

REACTIONS (1)
  - EPIDERMOLYSIS [None]
